FAERS Safety Report 20804839 (Version 2)
Quarter: 2022Q3

REPORT INFORMATION
  Report Type: Spontaneous
  Country: US (occurrence: None)
  Receive Date: 20220509
  Receipt Date: 20220809
  Transmission Date: 20221027
  Serious: No
  Sender: FDA-Public Use
  Company Number: 2022A166546

PATIENT
  Sex: Male
  Weight: 65.8 kg

DRUGS (1)
  1. BUDESONIDE\FORMOTEROL\GLYCOPYRRONIUM [Suspect]
     Active Substance: BUDESONIDE\FORMOTEROL\GLYCOPYRRONIUM
     Indication: Chronic obstructive pulmonary disease
     Dosage: 2 PUFFS TWICE A DAY, ONLY TAKES 1 PUFF IN MORNING AND 1 PUFF AT NIGHT
     Route: 055
     Dates: start: 202203

REACTIONS (5)
  - Cough [Unknown]
  - Feeling abnormal [Unknown]
  - Device malfunction [Unknown]
  - Intentional product misuse [Unknown]
  - Drug ineffective [Unknown]
